FAERS Safety Report 12791191 (Version 1)
Quarter: 2016Q3

REPORT INFORMATION
  Report Type: Spontaneous
  Country: GB (occurrence: GB)
  Receive Date: 20160929
  Receipt Date: 20160929
  Transmission Date: 20161109
  Serious: Yes (Other)
  Sender: FDA-Public Use
  Company Number: GB-BRISTOL-MYERS SQUIBB COMPANY-BMS-2016-078491

PATIENT
  Age: 72 Year
  Sex: Female
  Weight: 80.5 kg

DRUGS (6)
  1. ELIQUIS [Suspect]
     Active Substance: APIXABAN
     Indication: CEREBROVASCULAR ACCIDENT PROPHYLAXIS
     Dosage: UNK MG, UNK
     Route: 048
     Dates: start: 20160718
  2. ATORVASTATIN [Concomitant]
     Active Substance: ATORVASTATIN
     Indication: PROPHYLAXIS
     Dosage: 20 MG, QD
     Route: 048
  3. PERINDOPRIL [Concomitant]
     Active Substance: PERINDOPRIL
     Indication: HYPERTENSION
     Dosage: LONG STANDING.
     Route: 048
  4. BISOPROLOL [Concomitant]
     Active Substance: BISOPROLOL
     Indication: ATRIAL FIBRILLATION
     Dosage: 10 MG, QD
     Route: 048
  5. FUROSEMIDE. [Concomitant]
     Active Substance: FUROSEMIDE
     Indication: PRODUCT USED FOR UNKNOWN INDICATION
     Dosage: 40 MG, QD
     Route: 048
  6. DILTIAZEM. [Concomitant]
     Active Substance: DILTIAZEM
     Indication: HYPERTENSION
     Dosage: 120 MG, BID
     Route: 048

REACTIONS (1)
  - Diarrhoea [Not Recovered/Not Resolved]

NARRATIVE: CASE EVENT DATE: 20160725
